FAERS Safety Report 23629751 (Version 1)
Quarter: 2024Q1

REPORT INFORMATION
  Report Type: Spontaneous
  Country: JP (occurrence: JP)
  Receive Date: 20240314
  Receipt Date: 20240314
  Transmission Date: 20240409
  Serious: Yes (Hospitalization, Other)
  Sender: FDA-Public Use
  Company Number: JP-SANDOZ INC.-SDZ2024JP024779

PATIENT
  Age: 9 Decade
  Sex: Male
  Weight: 44 kg

DRUGS (1)
  1. XYLOCAINE [Suspect]
     Active Substance: LIDOCAINE HYDROCHLORIDE
     Indication: Local anaesthesia
     Dosage: 30 PUFFS (240 MG IN TOTAL)
     Route: 065

REACTIONS (4)
  - Local anaesthetic systemic toxicity [Unknown]
  - Sinus bradycardia [Unknown]
  - Altered state of consciousness [Unknown]
  - Overdose [Unknown]
